FAERS Safety Report 24218577 (Version 1)
Quarter: 2024Q3

REPORT INFORMATION
  Report Type: Spontaneous
  Country: US (occurrence: None)
  Receive Date: 20240815
  Receipt Date: 20240815
  Transmission Date: 20241016
  Serious: Yes (Hospitalization)
  Sender: Public
  Company Number: None

PATIENT
  Age: 55 Year
  Sex: Female
  Weight: 88.25 kg

DRUGS (1)
  1. ZEPBOUND [Suspect]
     Active Substance: TIRZEPATIDE
     Indication: Obesity
     Dosage: FREQUENCY : WEEKLY;?
     Route: 058
     Dates: start: 20240723, end: 20240812

REACTIONS (3)
  - Contusion [None]
  - Contusion [None]
  - Platelet count decreased [None]

NARRATIVE: CASE EVENT DATE: 20240812
